FAERS Safety Report 5135911-5 (Version None)
Quarter: 2006Q4

REPORT INFORMATION
  Report Type: 
  Country: None (occurrence: None)
  Receive Date: 20061019
  Receipt Date: 20061012
  Transmission Date: 20070319
  Serious: Yes (Disabling)
  Sender: FDA-Public Use
  Company Number: HQWYE008412OCT06

PATIENT
  Age: 76 Year
  Sex: Male

DRUGS (1)
  1. PANTOPRAZOLE SODIUM [Suspect]
     Indication: GASTRIC ULCER

REACTIONS (7)
  - ARTHRALGIA [None]
  - MYALGIA [None]
  - NONSPECIFIC REACTION [None]
  - OEDEMA [None]
  - SLEEP DISORDER [None]
  - SWELLING [None]
  - TENDON DISORDER [None]
